FAERS Safety Report 5122666-3 (Version None)
Quarter: 2006Q4

REPORT INFORMATION
  Report Type: 
  Country: None (occurrence: None)
  Receive Date: 20061009
  Receipt Date: 20061003
  Transmission Date: 20070319
  Serious: Yes (Death, Other)
  Sender: FDA-Public Use
  Company Number: PHBS2006GT15379

PATIENT
  Age: 37 Year
  Sex: Male

DRUGS (4)
  1. MYFORTIC [Suspect]
     Indication: RENAL TRANSPLANT
     Dosage: 720 MG, BID
     Route: 048
     Dates: start: 20060830, end: 20060902
  2. AZATHIOPRINE [Suspect]
     Route: 065
  3. TACROLIMUS [Concomitant]
  4. PREDNISONE [Concomitant]

REACTIONS (2)
  - CYTOMEGALOVIRUS INFECTION [None]
  - DEATH [None]
